FAERS Safety Report 14642020 (Version 1)
Quarter: 2018Q1

REPORT INFORMATION
  Report Type: Spontaneous
  Country: US (occurrence: US)
  Receive Date: 20180315
  Receipt Date: 20180315
  Transmission Date: 20180509
  Serious: Yes (Other)
  Sender: FDA-Public Use
  Company Number: US-OTSUKA-2018_006233

PATIENT
  Age: 63 Year
  Sex: Male

DRUGS (2)
  1. IMMUNOGLOBULIN (IMMUNOGLOBULIN HUMAN NORMAL) [Concomitant]
     Active Substance: HUMAN IMMUNOGLOBULIN G
     Indication: HYPOGAMMAGLOBULINAEMIA
     Dosage: UNK
     Route: 042
  2. DACOGEN [Suspect]
     Active Substance: DECITABINE
     Indication: MYELODYSPLASTIC SYNDROME
     Dosage: 39 MG, QD (20MG/M2) FOR 10 DAYS FIRST CYCLE FOLLOWED BY 39 MG DAILY FOR 5 DAYS EVERY MONTH
     Route: 065
     Dates: start: 201706

REACTIONS (3)
  - Dizziness [Unknown]
  - Incorrect drug administration duration [Unknown]
  - Deafness unilateral [Not Recovered/Not Resolved]

NARRATIVE: CASE EVENT DATE: 201706
